FAERS Safety Report 24414555 (Version 1)
Quarter: 2024Q4

REPORT INFORMATION
  Report Type: Spontaneous
  Country: GB (occurrence: GB)
  Receive Date: 20241009
  Receipt Date: 20241009
  Transmission Date: 20250115
  Serious: Yes (Other)
  Sender: DEXCEL
  Company Number: None

PATIENT

DRUGS (2)
  1. VENLAFAXINE [Suspect]
     Active Substance: VENLAFAXINE HYDROCHLORIDE
     Indication: Depression
     Dates: start: 20241002
  2. LEVOTHYROXINE [Concomitant]
     Active Substance: LEVOTHYROXINE
     Indication: Hypothyroidism
     Dates: start: 20240612

REACTIONS (3)
  - Nausea [Not Recovered/Not Resolved]
  - Vomiting [Not Recovered/Not Resolved]
  - Brain fog [Recovering/Resolving]

NARRATIVE: CASE EVENT DATE: 20241002
